FAERS Safety Report 4289301-8 (Version None)
Quarter: 2004Q1

REPORT INFORMATION
  Report Type: 
  Country: None (occurrence: None)
  Receive Date: 20040203
  Receipt Date: 19990506
  Transmission Date: 20041129
  Serious: Yes (Other)
  Sender: FDA-Public Use
  Company Number: 1999-057

PATIENT
  Age: 25 Year
  Sex: Female
  Weight: 74.8435 kg

DRUGS (1)
  1. DORYX [Suspect]
     Indication: UTERINE INFECTION
     Dosage: 100 MG BID ORAL
     Route: 048
     Dates: start: 19990503, end: 19990506

REACTIONS (2)
  - ANGIONEUROTIC OEDEMA [None]
  - PHOTOSENSITIVITY REACTION [None]
